FAERS Safety Report 8315304-X (Version None)
Quarter: 2012Q2

REPORT INFORMATION
  Report Type: 
  Country: None (occurrence: None)
  Receive Date: 20120426
  Receipt Date: 20120416
  Transmission Date: 20120825
  Serious: Yes (Other)
  Sender: FDA-Public Use
  Company Number: ES-SANOFI-AVENTIS-2012SA026708

PATIENT
  Age: 60 Year
  Sex: Male
  Weight: 140 kg

DRUGS (6)
  1. ACETYLSALICYLIC ACID SRT [Concomitant]
     Route: 048
     Dates: start: 20090129
  2. COROPRES [Concomitant]
     Route: 048
     Dates: start: 20100914
  3. CARDURA [Concomitant]
     Route: 065
     Dates: start: 20080812
  4. AMLODIPINE [Concomitant]
     Route: 065
     Dates: start: 20101220
  5. MULTAQ [Suspect]
     Route: 048
     Dates: start: 20101210, end: 20111014
  6. ALL OTHER NON-THERAPEUTIC PRODUCTS [Concomitant]
     Route: 048
     Dates: start: 20090429

REACTIONS (2)
  - GLOMERULAR FILTRATION RATE DECREASED [None]
  - BLOOD CREATININE INCREASED [None]
